FAERS Safety Report 9632259 (Version 2)
Quarter: 2013Q4

REPORT INFORMATION
  Report Type: Spontaneous
  Country: DE (occurrence: DE)
  Receive Date: 20131018
  Receipt Date: 20131205
  Transmission Date: 20140711
  Serious: Yes (Hospitalization)
  Sender: FDA-Public Use
  Company Number: DE-ROCHE-1290477

PATIENT
  Age: 76 Year
  Sex: Male
  Weight: 90 kg

DRUGS (6)
  1. ROACTEMRA [Suspect]
     Indication: RHEUMATOID ARTHRITIS
     Route: 042
     Dates: start: 201111, end: 20130130
  2. BONVIVA [Concomitant]
     Indication: OSTEOPOROSIS
     Route: 048
  3. QUENSYL [Concomitant]
     Indication: RHEUMATOID ARTHRITIS
     Route: 048
     Dates: start: 20110906
  4. ARAVA [Concomitant]
     Indication: RHEUMATOID ARTHRITIS
     Route: 048
     Dates: start: 20080729
  5. PREDNISONE [Concomitant]
     Indication: RHEUMATOID ARTHRITIS
     Route: 048
     Dates: start: 1984
  6. PANTOZOL (GERMANY) [Concomitant]
     Route: 048

REACTIONS (3)
  - Skin ulcer [Recovering/Resolving]
  - Impaired healing [Recovering/Resolving]
  - Osteomyelitis [Not Recovered/Not Resolved]
